FAERS Safety Report 10304307 (Version 5)
Quarter: 2014Q4

REPORT INFORMATION
  Report Type: Spontaneous
  Country: JP (occurrence: JP)
  Receive Date: 20140715
  Receipt Date: 20141212
  Transmission Date: 20150528
  Serious: Yes (Hospitalization, Other)
  Sender: FDA-Public Use
  Company Number: JP-UCBSA-2014005228

PATIENT
  Age: 83 Year
  Sex: Male

DRUGS (5)
  1. DOPASTON [Suspect]
     Active Substance: LEVODOPA
     Indication: PRODUCT USED FOR UNKNOWN INDICATION
     Dosage: 50 MG PER DAY
  2. NEUPRO [Suspect]
     Active Substance: ROTIGOTINE
     Indication: PARKINSON^S DISEASE
     Dosage: 2 MG DAILY
     Route: 062
     Dates: start: 20140516, end: 20140625
  3. LEVODOPA W/BENSERAZIDE [Concomitant]
     Active Substance: BENSERAZIDE\LEVODOPA
     Indication: PRODUCT USED FOR UNKNOWN INDICATION
     Dosage: UNK
  4. INTRALIPOS [Concomitant]
     Active Substance: SOYBEAN OIL
     Indication: PRODUCT USED FOR UNKNOWN INDICATION
     Dosage: 10 % UNKNOWN
     Route: 041
     Dates: start: 20140609, end: 20140613
  5. INTRALIPOS [Concomitant]
     Active Substance: SOYBEAN OIL
     Dosage: 10 % UNKNOWN
     Route: 041
     Dates: start: 20140619, end: 20140620

REACTIONS (2)
  - Hepatitis [Unknown]
  - Liver disorder [Recovering/Resolving]

NARRATIVE: CASE EVENT DATE: 2014
